FAERS Safety Report 16086700 (Version 1)
Quarter: 2019Q1

REPORT INFORMATION
  Report Type: Spontaneous
  Country: DE (occurrence: DE)
  Receive Date: 20190318
  Receipt Date: 20190318
  Transmission Date: 20190418
  Serious: Yes (Hospitalization)
  Sender: FDA-Public Use
  Company Number: PHHY2019DE060106

PATIENT
  Sex: Female
  Weight: 46 kg

DRUGS (1)
  1. PANTOPRAZOL HEXAL [Suspect]
     Active Substance: PANTOPRAZOLE
     Indication: PRODUCT USED FOR UNKNOWN INDICATION
     Dosage: UNK
     Route: 065

REACTIONS (5)
  - Tongue discomfort [Recovered/Resolved]
  - Constipation [Recovered/Resolved]
  - Hypovitaminosis [Recovered/Resolved]
  - Gastric disorder [Recovered/Resolved]
  - Underweight [Recovered/Resolved]
